FAERS Safety Report 18429804 (Version 1)
Quarter: 2020Q4

REPORT INFORMATION
  Report Type: Spontaneous
  Country: JP (occurrence: JP)
  Receive Date: 20201026
  Receipt Date: 20201026
  Transmission Date: 20210114
  Serious: Yes (Hospitalization, Disabling)
  Sender: FDA-Public Use
  Company Number: JP-PURDUE-USA-2020-0168763

PATIENT
  Age: 49 Year
  Sex: Male

DRUGS (17)
  1. GLYCERIN-FRUCTOSE [Concomitant]
     Active Substance: FRUCTOSE\GLYCERIN
  2. RANMARK [Concomitant]
     Active Substance: DENOSUMAB
  3. ROZEREM [Concomitant]
     Active Substance: RAMELTEON
     Indication: INSOMNIA
     Dosage: 8 MG, DAILY
     Route: 048
     Dates: start: 20190911, end: 20191028
  4. INTRALIPOS [Concomitant]
     Active Substance: SOYBEAN OIL
     Indication: NUTRITIONAL SUPPLEMENTATION
     Dosage: 100 ML, DAILY
     Dates: start: 20190910, end: 20191008
  5. GASTER [Concomitant]
     Active Substance: FAMOTIDINE
     Indication: GASTRITIS
     Dosage: 40 MG, DAILY
     Dates: start: 20190801, end: 20190926
  6. FENTOS [Concomitant]
     Active Substance: FENTANYL
     Indication: PAIN PROPHYLAXIS
     Dosage: 1 MG, DAILY
     Route: 062
     Dates: start: 20190730
  7. LYRICA [Concomitant]
     Active Substance: PREGABALIN
  8. NAUZELIN [Concomitant]
     Active Substance: DOMPERIDONE
     Dosage: 30 MG, DAILY
     Route: 048
     Dates: start: 20190815, end: 20190823
  9. BFLUID [Concomitant]
     Active Substance: AMINO ACIDS\DEXTROSE\ELECTROLYTES NOS\VITAMINS
     Indication: NUTRITIONAL SUPPLEMENTATION
     Dosage: 1500 ML, DAILY
     Dates: start: 20190912, end: 20191008
  10. ZYPREXA [Concomitant]
     Active Substance: OLANZAPINE
     Dosage: UNK
     Route: 048
     Dates: start: 20190814
  11. ELNEOPA NO.2 [Concomitant]
     Active Substance: AMINO ACIDS\DEXTROSE\ELECTROLYTES NOS\MINERALS\VITAMINS
  12. LOXONIN [Concomitant]
     Active Substance: LOXOPROFEN SODIUM
     Indication: PAIN PROPHYLAXIS
     Dosage: UNK
     Route: 048
     Dates: start: 20190823, end: 20190913
  13. ABSTRAL [Concomitant]
     Active Substance: FENTANYL CITRATE
     Indication: PAIN PROPHYLAXIS
     Dosage: 100 MCG, DAILY
     Route: 048
     Dates: start: 20190731
  14. ACELIO [Concomitant]
     Active Substance: ACETAMINOPHEN
  15. ELNEOPA NO.1 [Concomitant]
     Active Substance: AMINO ACIDS\DEXTROSE\ELECTROLYTES NOS\MINERALS\VITAMINS
  16. OXYCONTIN [Suspect]
     Active Substance: OXYCODONE HYDROCHLORIDE
     Indication: BACK PAIN
     Dosage: UNK
     Route: 065
     Dates: start: 20190725
  17. NOVAMIN                            /00013301/ [Concomitant]
     Active Substance: PROCHLORPERAZINE

REACTIONS (9)
  - Dysphagia [Not Recovered/Not Resolved]
  - Liver disorder [Recovered/Resolved]
  - Haemoptysis [Recovered/Resolved]
  - Hypocalcaemia [Recovered/Resolved]
  - Nausea [Recovering/Resolving]
  - Paralysis recurrent laryngeal nerve [Not Recovered/Not Resolved]
  - Device related infection [Recovered/Resolved]
  - Diarrhoea [Recovering/Resolving]
  - Sepsis [Recovered/Resolved]

NARRATIVE: CASE EVENT DATE: 20190814
